FAERS Safety Report 16799052 (Version 6)
Quarter: 2022Q2

REPORT INFORMATION
  Report Type: Spontaneous
  Country: US (occurrence: US)
  Receive Date: 20190912
  Receipt Date: 20220509
  Transmission Date: 20220720
  Serious: No
  Sender: FDA-Public Use
  Company Number: US-PFIZER INC-2018326694

PATIENT
  Age: 62 Year
  Sex: Male
  Weight: 81.65 kg

DRUGS (5)
  1. EFFEXOR XR [Suspect]
     Active Substance: VENLAFAXINE HYDROCHLORIDE
     Indication: Essential hypertension
     Dosage: 150 MG, UNK
     Route: 048
     Dates: start: 2014
  2. EFFEXOR XR [Suspect]
     Active Substance: VENLAFAXINE HYDROCHLORIDE
     Indication: Major depression
     Dosage: 150 MG, 2X/DAY
     Route: 048
  3. EFFEXOR XR [Suspect]
     Active Substance: VENLAFAXINE HYDROCHLORIDE
     Indication: Anxiety
     Dosage: 300 MG, 1X/DAY (2 CAPSULES WITH FOOD ONCE A DAY IN THE MORNING)
     Route: 048
  4. EFFEXOR XR [Suspect]
     Active Substance: VENLAFAXINE HYDROCHLORIDE
     Dosage: 300 MG, 1X/DAY (2 CAPSULES WITH FOOD ONCE A DAY IN THE MORNING)
     Route: 048
  5. EFFEXOR XR [Suspect]
     Active Substance: VENLAFAXINE HYDROCHLORIDE
     Dosage: 150 MG , 2X/DAY (2 CAPSULES)
     Route: 048
     Dates: start: 2014

REACTIONS (3)
  - Product dose omission issue [Unknown]
  - Prescribed overdose [Unknown]
  - Withdrawal syndrome [Unknown]
